FAERS Safety Report 10075469 (Version 1)
Quarter: 2014Q2

REPORT INFORMATION
  Report Type: Spontaneous
  Country: US (occurrence: None)
  Receive Date: 20140411
  Receipt Date: 20140411
  Transmission Date: 20141212
  Serious: Yes (Other)
  Sender: FDA-Public Use
  Company Number: None

PATIENT
  Sex: Male

DRUGS (2)
  1. DIANEAL PD2 [Suspect]
     Dosage: LOT# ?C903799
  2. DIANEAL LOW CALCIUM [Suspect]

REACTIONS (3)
  - Fungal peritonitis [None]
  - Peritonitis bacterial [None]
  - Product quality issue [None]
